FAERS Safety Report 4359734-X (Version None)
Quarter: 2004Q2

REPORT INFORMATION
  Report Type: 
  Country: None (occurrence: None)
  Receive Date: 20040512
  Receipt Date: 20040426
  Transmission Date: 20050107
  Serious: Yes (Hospitalization)
  Sender: FDA-Public Use
  Company Number: DSA_24313_2004

PATIENT
  Age: 78 Year
  Sex: Female

DRUGS (10)
  1. TEMESTA [Suspect]
     Indication: INSOMNIA
     Dosage: 1 MG Q DAY PO
     Route: 048
     Dates: start: 20031021, end: 20031023
  2. MORPHINE SULFATE [Suspect]
     Indication: ARTHRALGIA
     Dates: start: 20031017, end: 20031021
  3. MORPHINE [Suspect]
     Indication: ARTHRALGIA
     Dosage: 45 MG SC
     Route: 058
     Dates: start: 20031021, end: 20031023
  4. VIOXX [Suspect]
     Indication: ARTHRALGIA
     Dosage: 25 MG Q DAY PO
     Route: 048
     Dates: start: 20030806, end: 20031027
  5. LEXOTANIL [Suspect]
     Indication: ANXIETY
     Dosage: 1.5 MG Q DAY PO
     Route: 048
     Dates: start: 20031021, end: 20031023
  6. ASPIRIN CARDIO [Concomitant]
  7. ZESTRIL [Concomitant]
  8. LASIX [Concomitant]
  9. DEPONIT [Concomitant]
  10. DAFALGAN [Concomitant]

REACTIONS (9)
  - AGGRESSION [None]
  - AMNESIA [None]
  - CHOLESTASIS [None]
  - CONFUSIONAL STATE [None]
  - DISORIENTATION [None]
  - DRUG INTERACTION [None]
  - INSOMNIA [None]
  - OVERDOSE [None]
  - PAROTITIS [None]
